FAERS Safety Report 23706717 (Version 1)
Quarter: 2024Q2

REPORT INFORMATION
  Report Type: Spontaneous
  Country: FR (occurrence: FR)
  Receive Date: 20240404
  Receipt Date: 20240404
  Transmission Date: 20240716
  Serious: Yes (Other)
  Sender: FDA-Public Use
  Company Number: None

PATIENT
  Age: 18 Year
  Sex: Female
  Weight: 32.6 kg

DRUGS (19)
  1. RITUXIMAB [Suspect]
     Active Substance: RITUXIMAB
     Indication: Bone marrow transplant
     Dosage: UNK
     Route: 042
     Dates: start: 20231107, end: 20231107
  2. ENALAPRIL MALEATE [Suspect]
     Active Substance: ENALAPRIL MALEATE
     Indication: Hypertension
     Dosage: UNK
     Route: 048
     Dates: start: 20240223
  3. NEURONTIN [Suspect]
     Active Substance: GABAPENTIN
     Indication: Neuralgia
     Dosage: 200 MG, 3X/DAY (MORNING, NOON AND EVENING)
     Route: 048
     Dates: start: 20240223
  4. NITROUS OXIDE\OXYGEN [Suspect]
     Active Substance: NITROUS OXIDE\OXYGEN
     Indication: Pain
     Dosage: UNK
     Route: 055
  5. BACTRIM [Suspect]
     Active Substance: SULFAMETHOXAZOLE\TRIMETHOPRIM
     Indication: Prophylaxis
     Dosage: 800 MG, ALTERNATE DAY (EVERY MONDAY, WEDNESDAY AND FRIDAY)
     Route: 048
     Dates: start: 202311
  6. ALPRAZOLAM [Concomitant]
     Active Substance: ALPRAZOLAM
     Dosage: UNK
  7. AMITRIPTYLINE [Concomitant]
     Active Substance: AMITRIPTYLINE
     Dosage: UNK
  8. ENOXAPARIN SODIUM [Concomitant]
     Active Substance: ENOXAPARIN SODIUM
     Dosage: UNK
  9. LANSOPRAZOLE [Concomitant]
     Active Substance: LANSOPRAZOLE
     Dosage: UNK
  10. LETERMOVIR [Concomitant]
     Active Substance: LETERMOVIR
     Dosage: UNK
  11. MELATONIN [Concomitant]
     Active Substance: MELATONIN
     Dosage: UNK
  12. NEFOPAM HYDROCHLORIDE [Concomitant]
     Active Substance: NEFOPAM HYDROCHLORIDE
     Dosage: UNK
  13. ONDANSETRON [Concomitant]
     Active Substance: ONDANSETRON
     Dosage: UNK
  14. OXYCODONE [Concomitant]
     Active Substance: OXYCODONE\OXYCODONE HYDROCHLORIDE
     Dosage: UNK
  15. ACETAMINOPHEN [Concomitant]
     Active Substance: ACETAMINOPHEN
     Dosage: UNK
  16. PHLOROGLUCINOL [Concomitant]
     Active Substance: PHLOROGLUCINOL
     Dosage: UNK
  17. SERTRALINE HYDROCHLORIDE [Concomitant]
     Active Substance: SERTRALINE HYDROCHLORIDE
     Dosage: UNK
  18. URSODIOL [Concomitant]
     Active Substance: URSODIOL
     Dosage: UNK
  19. VALACYCLOVIR HYDROCHLORIDE [Concomitant]
     Active Substance: VALACYCLOVIR HYDROCHLORIDE
     Dosage: UNK

REACTIONS (2)
  - Hypoaesthesia [Recovering/Resolving]
  - Off label use [Unknown]

NARRATIVE: CASE EVENT DATE: 20231107
